FAERS Safety Report 4723490-3 (Version None)
Quarter: 2005Q3

REPORT INFORMATION
  Report Type: 
  Country: None (occurrence: None)
  Receive Date: 20050725
  Receipt Date: 20050718
  Transmission Date: 20060218
  Serious: Yes (Disabling)
  Sender: FDA-Public Use
  Company Number: DE-GLAXOSMITHKLINE-D0047127A

PATIENT
  Age: 8 Year
  Sex: Male

DRUGS (2)
  1. VIANI [Suspect]
     Route: 055
     Dates: start: 20020101
  2. SINGULAIR [Concomitant]
     Route: 065

REACTIONS (1)
  - TOOTH DISCOLOURATION [None]
